FAERS Safety Report 8585689-8 (Version None)
Quarter: 2012Q3

REPORT INFORMATION
  Report Type: 
  Country: None (occurrence: None)
  Receive Date: 20120810
  Receipt Date: 20120801
  Transmission Date: 20120928
  Serious: Yes (Hospitalization, Other)
  Sender: FDA-Public Use
  Company Number: MX-GENZYME-CERZ-1002511

PATIENT
  Sex: Female
  Weight: 25 kg

DRUGS (2)
  1. CEREZYME [Suspect]
     Indication: GAUCHER'S DISEASE
     Dosage: 120 U ( 4 VIALS ) , Q2W
     Route: 042
     Dates: start: 20080101
  2. MIGLUSTAT [Concomitant]
     Indication: GAUCHER'S DISEASE
     Dosage: 100 MG/KG, QD
     Route: 048

REACTIONS (6)
  - HEADACHE [None]
  - VOMITING [None]
  - HYPOGLYCAEMIA [None]
  - HYPOTHERMIA [None]
  - NYSTAGMUS [None]
  - PYREXIA [None]
